FAERS Safety Report 25269043 (Version 1)
Quarter: 2025Q2

REPORT INFORMATION
  Report Type: Spontaneous
  Country: ES (occurrence: ES)
  Receive Date: 20250505
  Receipt Date: 20250505
  Transmission Date: 20250716
  Serious: Yes (Life-Threatening, Hospitalization, Other)
  Sender: AUROBINDO
  Company Number: ES-002147023-NVSC2020ES217832

PATIENT
  Age: 28 Year
  Sex: Male

DRUGS (7)
  1. ACETAMINOPHEN [Suspect]
     Active Substance: ACETAMINOPHEN
     Indication: Product used for unknown indication
     Route: 065
  2. DIAZEPAM [Suspect]
     Active Substance: DIAZEPAM
     Indication: Drug abuse
     Route: 065
  3. EZETIMIBE [Suspect]
     Active Substance: EZETIMIBE
     Indication: Product used for unknown indication
     Route: 065
  4. MIDOMAFETAMINE [Suspect]
     Active Substance: MIDOMAFETAMINE
     Indication: Product used for unknown indication
     Route: 065
  5. KETAMINE [Suspect]
     Active Substance: KETAMINE
     Indication: Drug abuse
     Route: 065
  6. QUININE HYDROCHLORIDE [Suspect]
     Active Substance: QUININE HYDROCHLORIDE
     Indication: Product used for unknown indication
     Route: 065
  7. COCAINE [Suspect]
     Active Substance: COCAINE
     Indication: Product used for unknown indication
     Route: 065

REACTIONS (15)
  - Multiple organ dysfunction syndrome [Unknown]
  - Depressed level of consciousness [Unknown]
  - Cardiac arrest [Unknown]
  - Seizure [Unknown]
  - Hypoxia [Unknown]
  - Rhabdomyolysis [Unknown]
  - Biliary ischaemia [Unknown]
  - Memory impairment [Unknown]
  - Hepatic function abnormal [Unknown]
  - Disorientation [Unknown]
  - Hyperthermia [Unknown]
  - Hypotension [Unknown]
  - Hypertonia [Unknown]
  - Mydriasis [Unknown]
  - Drug ineffective [Unknown]
